FAERS Safety Report 5586866-0 (Version None)
Quarter: 2008Q1

REPORT INFORMATION
  Report Type: 
  Country: None (occurrence: None)
  Receive Date: 20080108
  Receipt Date: 20080108
  Transmission Date: 20080703
  Serious: Yes (Death)
  Sender: FDA-Public Use
  Company Number: None

PATIENT
  Age: 67 Year
  Sex: Male
  Weight: 68.0396 kg

DRUGS (2)
  1. CHANTIX [Suspect]
     Indication: SMOKING CESSATION THERAPY
     Dosage: 0.5 MG 1 -1-3-, 2 -4-7- PO  : 1.0 MG 1 TAB DAYS 8-42 PO
     Route: 048
     Dates: start: 20071121, end: 20071128
  2. SIMVASTATIN [Concomitant]

REACTIONS (7)
  - ANXIETY [None]
  - COMPLETED SUICIDE [None]
  - DIZZINESS [None]
  - HEADACHE [None]
  - INSOMNIA [None]
  - NAUSEA [None]
  - RESTLESSNESS [None]
